FAERS Safety Report 4378894-8 (Version None)
Quarter: 2004Q2

REPORT INFORMATION
  Report Type: 
  Country: None (occurrence: None)
  Receive Date: 20040601
  Receipt Date: 20040130
  Transmission Date: 20050107
  Serious: No
  Sender: FDA-Public Use
  Company Number: WAES0402USA00077

PATIENT
  Age: 38 Year
  Sex: Male
  Weight: 102.0593 kg

DRUGS (4)
  1. ZETIA [Suspect]
     Dosage: 10 MG/DAILY/PO
     Route: 048
     Dates: start: 20030603, end: 20031216
  2. ZETIA [Suspect]
     Dosage: 10 MG/DAILY/PO
     Route: 048
     Dates: start: 20040116, end: 20040101
  3. ALLEGRA [Concomitant]
  4. NASACORT [Concomitant]

REACTIONS (7)
  - BLOOD CREATINE PHOSPHOKINASE INCREASED [None]
  - HEADACHE [None]
  - HYPOAESTHESIA [None]
  - MYALGIA [None]
  - POLLAKIURIA [None]
  - PROTEINURIA [None]
  - SLEEP DISORDER [None]
